FAERS Safety Report 17529093 (Version 1)
Quarter: 2020Q1

REPORT INFORMATION
  Report Type: Spontaneous
  Country: US (occurrence: US)
  Receive Date: 20200311
  Receipt Date: 20200311
  Transmission Date: 20200409
  Serious: No
  Sender: FDA-Public Use
  Company Number: US-ROCHE-2533862

PATIENT
  Sex: Male

DRUGS (1)
  1. ENTRECTINIB [Suspect]
     Active Substance: ENTRECTINIB
     Indication: LUNG NEOPLASM MALIGNANT
     Dosage: ONCE DAILY
     Route: 065
     Dates: start: 20200108

REACTIONS (5)
  - Dizziness [Unknown]
  - Muscular weakness [Unknown]
  - Somnolence [Unknown]
  - Dysarthria [Unknown]
  - Constipation [Unknown]
